FAERS Safety Report 6454236-9 (Version None)
Quarter: 2009Q4

REPORT INFORMATION
  Report Type: 
  Country: None (occurrence: None)
  Receive Date: 20091124
  Receipt Date: 20091117
  Transmission Date: 20100525
  Serious: Yes (Other)
  Sender: FDA-Public Use
  Company Number: DE-GENENTECH-294426

PATIENT
  Sex: Female
  Weight: 24.7 kg

DRUGS (1)
  1. SOMATROPIN [Suspect]
     Indication: GROWTH HORMONE DEFICIENCY
     Dosage: 0.8 MG, 7/WEEK
     Route: 065
     Dates: start: 20050707

REACTIONS (1)
  - INTRAOCULAR PRESSURE INCREASED [None]
